FAERS Safety Report 5606059-8 (Version None)
Quarter: 2008Q1

REPORT INFORMATION
  Report Type: 
  Country: None (occurrence: None)
  Receive Date: 20080129
  Receipt Date: 20080124
  Transmission Date: 20080703
  Serious: Yes (Hospitalization)
  Sender: FDA-Public Use
  Company Number: US-AVENTIS-200810519US

PATIENT

DRUGS (2)
  1. LANTUS [Suspect]
     Indication: DIABETES MELLITUS
     Dosage: DOSE: UNK
  2. HUMALOG [Suspect]
     Indication: DIABETES MELLITUS
     Dosage: DOSE: UNK

REACTIONS (2)
  - HOSPITALISATION [None]
  - OFF LABEL USE [None]
